FAERS Safety Report 8964377 (Version 1)
Quarter: 2012Q4

REPORT INFORMATION
  Report Type: 
  Country: US (occurrence: US)
  Receive Date: 20121214
  Receipt Date: 20121214
  Transmission Date: 20130627
  Serious: No
  Sender: FDA-Public Use
  Company Number: US-GLAXOSMITHKLINE-A0978406A

PATIENT
  Age: 68 Year
  Sex: Male

DRUGS (6)
  1. AVODART [Suspect]
     Indication: BENIGN PROSTATIC HYPERPLASIA
     Dosage: 1CAP Alternate days
     Route: 048
     Dates: start: 2008
  2. LISINOPRIL + HYDROCHLOROTHIAZIDE [Concomitant]
  3. PRAVACHOL [Concomitant]
  4. COQ10 [Concomitant]
  5. OMEGA 3 [Concomitant]
  6. ZETIA [Concomitant]

REACTIONS (3)
  - Breast mass [Not Recovered/Not Resolved]
  - Musculoskeletal chest pain [Unknown]
  - Chest discomfort [Unknown]
